FAERS Safety Report 5808028-1 (Version None)
Quarter: 2008Q3

REPORT INFORMATION
  Report Type: 
  Country: None (occurrence: None)
  Receive Date: 20080708
  Receipt Date: 20080624
  Transmission Date: 20090109
  Serious: Yes (Death, Hospitalization)
  Sender: FDA-Public Use
  Company Number: A-CH2008-21013

PATIENT
  Age: 82 Year
  Sex: Male

DRUGS (8)
  1. TRACLEER [Suspect]
     Indication: PULMONARY ARTERIAL HYPERTENSION
     Dosage: 125 MG, BID, ORAL; 62.5 MG, BID, ORAL
     Route: 048
     Dates: start: 20060530, end: 20060802
  2. TRACLEER [Suspect]
     Indication: PULMONARY ARTERIAL HYPERTENSION
     Dosage: 125 MG, BID, ORAL; 62.5 MG, BID, ORAL
     Route: 048
     Dates: start: 20060803, end: 20080428
  3. REVATIO (SILDENAFIL CITRATE) [Concomitant]
  4. ALDACTONE [Concomitant]
  5. BUMETANIDE [Concomitant]
  6. SINTROM [Concomitant]
  7. SPIRIVA [Concomitant]
  8. COMBIVENT (IPRATROPIUM BROMIDE, SALBUTAMOL) [Concomitant]

REACTIONS (5)
  - CARDIOPULMONARY FAILURE [None]
  - DISEASE PROGRESSION [None]
  - PULMONARY HYPERTENSION [None]
  - RENAL FAILURE ACUTE [None]
  - RIGHT VENTRICULAR FAILURE [None]
